FAERS Safety Report 5317922-X (Version None)
Quarter: 2007Q2

REPORT INFORMATION
  Report Type: 
  Country: None (occurrence: None)
  Receive Date: 20070507
  Receipt Date: 20070503
  Transmission Date: 20071010
  Serious: Yes (Life-Threatening)
  Sender: FDA-Public Use
  Company Number: B0469263A

PATIENT
  Age: 28 Year
  Sex: Female

DRUGS (4)
  1. AUGMENTIN '125' [Suspect]
     Dosage: 1UNIT PER DAY
     Route: 042
     Dates: start: 20070101, end: 20070101
  2. DIPRIVAN [Concomitant]
     Dosage: 1UNIT PER DAY
     Route: 042
     Dates: start: 20070101, end: 20070101
  3. OXYTOCIN [Concomitant]
     Dosage: 1UNIT PER DAY
     Route: 042
     Dates: start: 20070101, end: 20070101
  4. SUFENTANIL CITRATE [Concomitant]
     Dosage: 1UNIT PER DAY
     Route: 042
     Dates: start: 20070101, end: 20070101

REACTIONS (3)
  - ANAPHYLACTIC SHOCK [None]
  - ERYTHEMA [None]
  - HYPOTENSION [None]
